FAERS Safety Report 15312237 (Version 1)
Quarter: 2018Q3

REPORT INFORMATION
  Report Type: Spontaneous
  Country: US (occurrence: US)
  Receive Date: 20180814
  Receipt Date: 20180814
  Transmission Date: 20181010
  Serious: Yes (Other)
  Sender: FDA-Public Use
  Company Number: None

PATIENT
  Age: 70 Year
  Sex: Female
  Weight: 81.65 kg

DRUGS (14)
  1. VALSARTAN AND HYDROCHLOROTHIAZIDE [Suspect]
     Active Substance: HYDROCHLOROTHIAZIDE\VALSARTAN
     Indication: HYPERTENSION
     Route: 048
     Dates: start: 201410, end: 20180720
  2. LEVOTHYROXINE SODIUM. [Concomitant]
     Active Substance: LEVOTHYROXINE SODIUM
  3. CENTRUM SILVER [Concomitant]
     Active Substance: MINERALS\VITAMINS
  4. CHONDROITIN [Concomitant]
     Active Substance: CHONDROITIN
  5. IRBESARTAN/HYDROCHLOROTHIAZIDE [Concomitant]
     Active Substance: HYDROCHLOROTHIAZIDE\IRBESARTAN
  6. GLUCOSAMINE [Concomitant]
     Active Substance: GLUCOSAMINE
  7. VITAMIN D3 [Concomitant]
     Active Substance: CHOLECALCIFEROL
  8. TURMERIC [Concomitant]
     Active Substance: HERBALS\TURMERIC
  9. MAGNESIUM [Concomitant]
     Active Substance: MAGNESIUM
  10. BABY ASPIRIN [Concomitant]
     Active Substance: ASPIRIN
  11. ANASTROZOLE. [Concomitant]
     Active Substance: ANASTROZOLE
  12. FISH OIL [Concomitant]
     Active Substance: FISH OIL
  13. ROSUVASTATIN CALCIUM. [Concomitant]
     Active Substance: ROSUVASTATIN CALCIUM
  14. PROBIOTIC [Concomitant]
     Active Substance: PROBIOTICS NOS

REACTIONS (2)
  - Breast cancer [None]
  - Product use issue [None]

NARRATIVE: CASE EVENT DATE: 20180718
